FAERS Safety Report 8111359-6 (Version None)
Quarter: 2012Q1

REPORT INFORMATION
  Report Type: 
  Country: None (occurrence: None)
  Receive Date: 20120203
  Receipt Date: 20110928
  Transmission Date: 20120608
  Serious: No
  Sender: FDA-Public Use
  Company Number: US-GLAXOSMITHKLINE-A0946319A

PATIENT
  Age: 49 Year

DRUGS (4)
  1. METOPROLOL [Concomitant]
  2. WELLBUTRIN [Concomitant]
  3. TRAZODONE HCL [Concomitant]
  4. LAMICTAL [Suspect]
     Indication: AFFECTIVE DISORDER
     Dosage: 100MG THREE TIMES PER DAY

REACTIONS (2)
  - EYE SWELLING [None]
  - RASH [None]
